FAERS Safety Report 10497928 (Version 2)
Quarter: 2014Q4

REPORT INFORMATION
  Report Type: Spontaneous
  Country: US (occurrence: None)
  Receive Date: 20141002
  Receipt Date: 20141015
  Transmission Date: 20150528
  Serious: Yes (Disabling, Other)
  Sender: FDA-Public Use
  Company Number: FK201403868

PATIENT
  Age: 85 Year
  Sex: Female
  Weight: 52.62 kg

DRUGS (1)
  1. GENTAMICIN INJECTION, USP (GENTAMICIN SULFATE) (GENTAMICIN SULFATE) [Suspect]
     Active Substance: GENTAMICIN SULFATE
     Indication: PRODUCT USED FOR UNKNOWN INDICATION
     Route: 031
     Dates: start: 20130903, end: 20130903

REACTIONS (6)
  - Off label use [None]
  - Eye injury [None]
  - Eye pain [None]
  - Toxic anterior segment syndrome [None]
  - Incorrect route of drug administration [None]
  - Blindness [None]
